FAERS Safety Report 24835274 (Version 1)
Quarter: 2025Q1

REPORT INFORMATION
  Report Type: Other
  Country: US (occurrence: US)
  Receive Date: 20250113
  Receipt Date: 20250113
  Transmission Date: 20250409
  Serious: Yes (Life-Threatening, Hospitalization, Other)
  Sender: CREEKWOOD PHARMACEUTICALS LLC
  Company Number: US-Creekwood Pharmaceuticals LLC-2168940

PATIENT
  Age: 7 Decade
  Sex: Male

DRUGS (4)
  1. HYDROXYCHLOROQUINE SULFATE [Suspect]
     Active Substance: HYDROXYCHLOROQUINE SULFATE
     Indication: COVID-19
  2. AZITHROMYCIN [Concomitant]
     Active Substance: AZITHROMYCIN
  3. AMLODIPINE [Concomitant]
     Active Substance: AMLODIPINE BESYLATE
  4. TOCILIZUMAB [Concomitant]
     Active Substance: TOCILIZUMAB

REACTIONS (6)
  - Haemolysis [Unknown]
  - Off label use [Unknown]
  - Myoglobinaemia [Unknown]
  - Myositis [Unknown]
  - Methaemoglobinaemia [Unknown]
  - Acute kidney injury [Unknown]
